FAERS Safety Report 12076488 (Version 17)
Quarter: 2018Q1

REPORT INFORMATION
  Report Type: Report from Study
  Country: US (occurrence: US)
  Receive Date: 20160215
  Receipt Date: 20180106
  Transmission Date: 20180508
  Serious: Yes (Hospitalization, Other)
  Sender: FDA-Public Use
  Company Number: PHHO2016US002014

PATIENT
  Age: 12 Year
  Sex: Male
  Weight: 40.8 kg

DRUGS (51)
  1. TOBI [Suspect]
     Active Substance: TOBRAMYCIN
     Indication: HAEMOPTYSIS
     Dosage: 300 MG, BID
     Route: 055
     Dates: start: 20160317, end: 20160331
  2. TOBI [Suspect]
     Active Substance: TOBRAMYCIN
     Dosage: 300 MG, BID (TREATMENT TEMPORARILY INTERRUPTED ON 13 JUL 2016)
     Route: 055
     Dates: start: 20160701, end: 20160713
  3. TOBI [Suspect]
     Active Substance: TOBRAMYCIN
     Dosage: UNK
     Route: 055
     Dates: start: 20160714, end: 20160726
  4. TOBI [Suspect]
     Active Substance: TOBRAMYCIN
     Dosage: 300 OT, BID
     Route: 055
     Dates: start: 20170404, end: 20170503
  5. CAYSTON [Suspect]
     Active Substance: AZTREONAM
     Indication: PRODUCT USED FOR UNKNOWN INDICATION
     Dosage: 75 OT, TID
     Route: 065
     Dates: start: 20151201, end: 20151228
  6. FLUTICASONE. [Concomitant]
     Active Substance: FLUTICASONE
     Indication: PROPHYLAXIS
     Dosage: 2 DF (2 PUFF), BID
     Route: 055
     Dates: start: 20160229
  7. ALBUTEROL HFA [Concomitant]
     Active Substance: ALBUTEROL SULFATE
     Dosage: 2.5 MG, BID
     Route: 055
     Dates: start: 20160915
  8. TOBI [Suspect]
     Active Substance: TOBRAMYCIN
     Dosage: 300 MG, BID
     Route: 055
     Dates: start: 20160817
  9. CAYSTON [Suspect]
     Active Substance: AZTREONAM
     Dosage: UNK
     Route: 065
     Dates: start: 20160204, end: 20160214
  10. CAYSTON [Suspect]
     Active Substance: AZTREONAM
     Dosage: 75 OT, TID
     Route: 065
     Dates: start: 20160401, end: 20160428
  11. COLISTIN [Suspect]
     Active Substance: COLISTIN
     Indication: PRODUCT USED FOR UNKNOWN INDICATION
     Dosage: 150 MG, BID
     Route: 055
     Dates: start: 20160902, end: 20160929
  12. COLISTIN [Suspect]
     Active Substance: COLISTIN
     Dosage: 150 MG, BID
     Route: 055
     Dates: start: 20171115, end: 20171120
  13. TOBRAMYCIN. [Suspect]
     Active Substance: TOBRAMYCIN
     Dosage: 300 MG, BID
     Route: 055
     Dates: start: 20171009, end: 20171114
  14. CAYSTON [Suspect]
     Active Substance: AZTREONAM
     Dosage: 75 OT, TID
     Route: 065
     Dates: start: 20160601, end: 20160628
  15. COLISTIN [Suspect]
     Active Substance: COLISTIN
     Dosage: 150 MG, BID
     Route: 055
     Dates: start: 20170103, end: 20170130
  16. COLISTIN [Suspect]
     Active Substance: COLISTIN
     Dosage: 150 MG, BID
     Route: 055
     Dates: start: 20170504, end: 20170731
  17. ALBUTEROL HFA [Concomitant]
     Active Substance: ALBUTEROL SULFATE
     Dosage: 2.5 MG, BID
     Route: 055
     Dates: start: 20161214
  18. DORNASE ALFA. [Concomitant]
     Active Substance: DORNASE ALFA
     Dosage: 2.5 MG, QD
     Route: 055
     Dates: start: 20160817
  19. TOBRAMYCIN. [Suspect]
     Active Substance: TOBRAMYCIN
     Indication: PRODUCT USED FOR UNKNOWN INDICATION
     Dosage: 300 MG, BID
     Route: 055
     Dates: start: 20170801, end: 20170902
  20. AZTREONAM. [Suspect]
     Active Substance: AZTREONAM
     Dosage: 75 MG, TID
     Route: 055
     Dates: start: 20160628, end: 20160817
  21. COLISTIN [Suspect]
     Active Substance: COLISTIN
     Dosage: 150 MG, BID
     Route: 055
     Dates: start: 20170301, end: 20170315
  22. COLISTIN [Suspect]
     Active Substance: COLISTIN
     Dosage: 150 MG, BID
     Route: 055
     Dates: start: 20170328, end: 20170403
  23. HYPERSAL [Concomitant]
     Dosage: UNK
     Route: 065
     Dates: start: 20160818
  24. HYPERSAL [Concomitant]
     Dosage: 4 ML, BID
     Route: 055
     Dates: start: 20161214
  25. HYPERSAL [Concomitant]
     Dosage: 4 ML, TID
     Route: 055
     Dates: start: 20170530
  26. AZTREONAM. [Suspect]
     Active Substance: AZTREONAM
     Indication: PRODUCT USED FOR UNKNOWN INDICATION
     Dosage: 75 MG, TID
     Route: 055
     Dates: start: 20160201, end: 20160204
  27. COLISTIN [Suspect]
     Active Substance: COLISTIN
     Dosage: 150 MG, BID
     Route: 055
     Dates: start: 20161101, end: 20161128
  28. COLISTIN [Suspect]
     Active Substance: COLISTIN
     Dosage: 150 MG, BID
     Route: 055
     Dates: start: 20170903, end: 20171006
  29. COLISTIN [Suspect]
     Active Substance: COLISTIN
     Dosage: 75 MG, BID
     Route: 055
     Dates: start: 20171122, end: 20171205
  30. HYPERSAL [Concomitant]
     Indication: PROPHYLAXIS
     Dosage: 4 ML, BID
     Route: 055
     Dates: start: 20160229
  31. HYPERSAL [Concomitant]
     Dosage: 4 ML, BID
     Route: 055
     Dates: start: 20160817
  32. HYPERSAL [Concomitant]
     Dosage: 4 ML, BID
     Route: 055
     Dates: start: 20160915
  33. ALBUTEROL HFA [Concomitant]
     Active Substance: ALBUTEROL SULFATE
     Dosage: 2.5 MG, TID
     Route: 055
     Dates: end: 20170530
  34. DORNASE ALFA. [Concomitant]
     Active Substance: DORNASE ALFA
     Indication: PROPHYLAXIS
     Dosage: 2.5 MG, QD
     Route: 055
     Dates: start: 20160713
  35. TOBI [Suspect]
     Active Substance: TOBRAMYCIN
     Indication: PNEUMONIA
     Dosage: 300 MG, BID
     Route: 055
     Dates: start: 20151103, end: 20151130
  36. TOBI [Suspect]
     Active Substance: TOBRAMYCIN
     Indication: PSEUDOMONAS INFECTION
     Dosage: 300 MG, BID
     Route: 055
     Dates: start: 20160502, end: 20160529
  37. HYPERSAL [Concomitant]
     Dosage: 4 ML, TID
     Route: 055
     Dates: end: 20170315
  38. ALBUTEROL HFA [Concomitant]
     Active Substance: ALBUTEROL SULFATE
     Indication: DYSPNOEA
     Dosage: 2.5 MG, QID
     Route: 055
     Dates: start: 20160713
  39. ALBUTEROL HFA [Concomitant]
     Active Substance: ALBUTEROL SULFATE
     Indication: WHEEZING
     Dosage: 1 OT (2 PUFF), PRN
     Route: 055
     Dates: start: 20160713
  40. DORNASE ALFA. [Concomitant]
     Active Substance: DORNASE ALFA
     Dosage: 2.5 MG, QD
     Route: 055
     Dates: start: 20160819
  41. TOBI [Suspect]
     Active Substance: TOBRAMYCIN
     Dosage: 300 MG, BID
     Route: 055
     Dates: start: 20160727, end: 20160817
  42. TOBI [Suspect]
     Active Substance: TOBRAMYCIN
     Dosage: 300 MG, BID
     Route: 055
     Dates: start: 20170201, end: 20170228
  43. CAYSTON [Suspect]
     Active Substance: AZTREONAM
     Dosage: 75 OT, TID
     Route: 065
     Dates: start: 20160201, end: 20160203
  44. CAYSTON [Suspect]
     Active Substance: AZTREONAM
     Dosage: 75 OT, TID
     Route: 065
     Dates: start: 20160215, end: 20160228
  45. DORNASE ALFA. [Concomitant]
     Active Substance: DORNASE ALFA
     Dosage: UNK
     Route: 065
     Dates: start: 20160818
  46. TOBI [Suspect]
     Active Substance: TOBRAMYCIN
     Indication: INFECTIVE PULMONARY EXACERBATION OF CYSTIC FIBROSIS
     Dosage: 300 MG, BID
     Route: 055
     Dates: start: 20160101, end: 20160128
  47. TOBI [Suspect]
     Active Substance: TOBRAMYCIN
     Dosage: 300 MG, BID
     Route: 055
     Dates: start: 20161001, end: 20161028
  48. AZTREONAM. [Suspect]
     Active Substance: AZTREONAM
     Dosage: 75 MG, UNK
     Route: 055
     Dates: start: 20160601, end: 20160628
  49. COLISTIN [Suspect]
     Active Substance: COLISTIN
     Dosage: 150 MG, BID
     Route: 055
     Dates: start: 20161212, end: 20161214
  50. HYPERSAL [Concomitant]
     Dosage: DOSE INCREASED
     Route: 055
     Dates: start: 20161208
  51. ALBUTEROL HFA [Concomitant]
     Active Substance: ALBUTEROL SULFATE
     Indication: PROPHYLAXIS
     Dosage: 2.5 MG, BID
     Route: 055
     Dates: start: 20160818

REACTIONS (46)
  - Infective pulmonary exacerbation of cystic fibrosis [Recovered/Resolved]
  - Infective pulmonary exacerbation of cystic fibrosis [Recovered/Resolved]
  - Infective pulmonary exacerbation of cystic fibrosis [Recovered/Resolved]
  - Pneumonia [Not Recovered/Not Resolved]
  - Bronchiectasis [Recovered/Resolved]
  - Infective pulmonary exacerbation of cystic fibrosis [Recovered/Resolved]
  - Infective pulmonary exacerbation of cystic fibrosis [Unknown]
  - Haemoptysis [Recovered/Resolved]
  - Pneumonia pseudomonal [Recovered/Resolved]
  - Pneumonia [Recovered/Resolved]
  - Decreased appetite [Unknown]
  - Dyspnoea [Unknown]
  - Infective pulmonary exacerbation of cystic fibrosis [Recovered/Resolved]
  - Infective pulmonary exacerbation of cystic fibrosis [Recovered/Resolved]
  - Infective pulmonary exacerbation of cystic fibrosis [Recovered/Resolved]
  - Dermatitis contact [Recovered/Resolved]
  - Haemoptysis [Recovered/Resolved]
  - Chest pain [Recovered/Resolved]
  - Oropharyngeal pain [Recovered/Resolved]
  - Gamma-glutamyltransferase increased [Unknown]
  - Gastrooesophageal reflux disease [Unknown]
  - Cough [Not Recovered/Not Resolved]
  - Fatigue [Unknown]
  - Sputum increased [Unknown]
  - Infective pulmonary exacerbation of cystic fibrosis [Recovered/Resolved]
  - Microcytic anaemia [Unknown]
  - Infective pulmonary exacerbation of cystic fibrosis [Recovered/Resolved]
  - Infective pulmonary exacerbation of cystic fibrosis [Recovered/Resolved]
  - Weight decreased [Unknown]
  - Weight increased [Unknown]
  - Pneumonia [Recovered/Resolved]
  - Pneumonia [Recovered/Resolved]
  - Infective pulmonary exacerbation of cystic fibrosis [Unknown]
  - Sinus disorder [Recovered/Resolved]
  - Anosmia [Recovered/Resolved]
  - Urticaria [Recovered/Resolved]
  - Infective pulmonary exacerbation of cystic fibrosis [Recovered/Resolved]
  - Haemoptysis [Unknown]
  - Infective pulmonary exacerbation of cystic fibrosis [Recovered/Resolved]
  - Blood glucose increased [Unknown]
  - Infective pulmonary exacerbation of cystic fibrosis [Recovered/Resolved]
  - Ageusia [Recovered/Resolved]
  - Bronchial wall thickening [Unknown]
  - International normalised ratio increased [Unknown]
  - Prothrombin level increased [Unknown]
  - Vitamin D decreased [Unknown]

NARRATIVE: CASE EVENT DATE: 20160105
